FAERS Safety Report 20735625 (Version 3)
Quarter: 2022Q3

REPORT INFORMATION
  Report Type: Report from Study
  Country: BG (occurrence: BG)
  Receive Date: 20220421
  Receipt Date: 20220712
  Transmission Date: 20221027
  Serious: Yes (Other)
  Sender: FDA-Public Use
  Company Number: BG-ROCHE-2599479

PATIENT
  Age: 64 Year
  Sex: Female
  Weight: 62 kg

DRUGS (7)
  1. TRASTUZUMAB [Suspect]
     Active Substance: TRASTUZUMAB
     Indication: HER2 positive breast cancer
     Dosage: 450 MILLIGRAM, Q28DON 26/SEP/2019 MOST RECENT DOSE OF TRASTUZUMAB PRIOR TO THE EVENT
     Route: 041
     Dates: start: 20190829
  2. PERTUZUMAB [Suspect]
     Active Substance: PERTUZUMAB
     Indication: HER2 positive breast cancer
     Dosage: 840 MILLIGRAM, Q3W,MOST RECENT DOSE PRIOR TO THE EVENT: 01/JUN/2020
     Route: 042
     Dates: start: 20200511
  3. PERTUZUMAB [Suspect]
     Active Substance: PERTUZUMAB
     Dosage: 420 MILLIGRAM, Q3W
     Route: 042
     Dates: start: 20200601
  4. DOCETAXEL [Suspect]
     Active Substance: DOCETAXEL
     Indication: HER2 positive breast cancer
     Dosage: 126 MILLIGRAM,Q28D, ON 26/SEP/2019 MOST RECENT DOSE OF DOCETAXEL PRIOR TO THE EVENT
     Route: 042
     Dates: start: 20190829
  5. ZOMETA [Concomitant]
     Active Substance: ZOLEDRONIC ACID
     Indication: Osteoporotic fracture
     Dosage: 4 MILLIGRAM, MONTHLY
     Route: 042
     Dates: start: 20200923
  6. OLMESTA [Concomitant]
     Dosage: UNK, ONGOING - CHECKED
     Route: 065
     Dates: start: 20160615
  7. RENOVIA [Concomitant]
     Dosage: UNK (ONGOING - CHECKED)
     Route: 065
     Dates: start: 20160615

REACTIONS (2)
  - Osteoporotic fracture [Not Recovered/Not Resolved]
  - Spinal pain [Recovered/Resolved]

NARRATIVE: CASE EVENT DATE: 20200320
